FAERS Safety Report 25898363 (Version 1)
Quarter: 2025Q4

REPORT INFORMATION
  Report Type: Spontaneous
  Country: EU (occurrence: EU)
  Receive Date: 20251008
  Receipt Date: 20251008
  Transmission Date: 20260118
  Serious: Yes (Other)
  Sender: ABBVIE
  Company Number: EU-EMB-M202406731-1

PATIENT
  Age: 32 Year
  Sex: Female
  Weight: 90 kg

DRUGS (7)
  1. ESCITALOPRAM [Suspect]
     Active Substance: ESCITALOPRAM OXALATE
     Indication: Panic attack
     Dosage: DIFFERING INFORMATION ABOUT DAILY DOSAGE: AFTER GESTATION WEEK 31 IN THE FURTHER COURSE 10-13 MG ...
     Route: 048
     Dates: start: 202502
  2. ESCITALOPRAM [Suspect]
     Active Substance: ESCITALOPRAM OXALATE
     Indication: Panic attack
     Dosage: DIFFERING INFORMATION ABOUT DAILY DOSAGE: UNTIL GESTATION WEEK 7 - 10 MG EVERY 2 DAYS
     Route: 048
     Dates: start: 202406, end: 202408
  3. ESCITALOPRAM [Suspect]
     Active Substance: ESCITALOPRAM OXALATE
     Indication: Panic attack
     Dosage: DIFFERING INFORMATION ABOUT DAILY DOSAGE: AFTERWARDS PROBABLY 10 MG PER DAY UNTIL AT LEAST GESTAT...
     Route: 048
     Dates: start: 202408, end: 202502
  4. PIPAMPERONE HYDROCHLORIDE [Suspect]
     Active Substance: PIPAMPERONE HYDROCHLORIDE
     Indication: Sleep disorder
     Dosage: UNTIL GESTATION WEEK 12
     Route: 048
     Dates: start: 202406, end: 202409
  5. QUETIAPINE [Suspect]
     Active Substance: QUETIAPINE
     Indication: Sleep disorder
     Dosage: STRENGTH - 25 MILLIGRAM?GESTATION WEEK - 12 UNTIL DELIVERY
     Route: 048
     Dates: start: 202409, end: 202502
  6. PERTUSSIS VACCINE [Concomitant]
     Active Substance: PERTUSSIS VACCINE
     Indication: Immunisation
     Dosage: UNKNOWN TRIMESTER
     Route: 030
  7. FOLATE SODIUM [Concomitant]
     Active Substance: FOLATE SODIUM
     Indication: Prophylaxis of neural tube defect
     Dosage: PRECONCEPTIONALLY
     Route: 048

REACTIONS (4)
  - Gestational diabetes [Recovered/Resolved]
  - Inappropriate schedule of product administration [Unknown]
  - Maternal exposure during pregnancy [Unknown]
  - Live birth [Unknown]

NARRATIVE: CASE EVENT DATE: 20240901
